FAERS Safety Report 5093641-2 (Version None)
Quarter: 2006Q3

REPORT INFORMATION
  Report Type: 
  Country: None (occurrence: None)
  Receive Date: 20060829
  Receipt Date: 20060814
  Transmission Date: 20061208
  Serious: No
  Sender: FDA-Public Use
  Company Number: 2006S1007618

PATIENT
  Sex: Female
  Weight: 72.5755 kg

DRUGS (2)
  1. ATENOLOL [Suspect]
     Indication: HYPERTENSION
     Dosage: 100 MG; QD; PO
     Route: 048
     Dates: start: 20040801
  2. CADUET [Concomitant]

REACTIONS (1)
  - RETINAL OEDEMA [None]
